FAERS Safety Report 8252120-1 (Version None)
Quarter: 2012Q2

REPORT INFORMATION
  Report Type: 
  Country: None (occurrence: None)
  Receive Date: 20120402
  Receipt Date: 20110615
  Transmission Date: 20120825
  Serious: No
  Sender: FDA-Public Use
  Company Number: US-ABBOTT-11P-163-0732764-00

PATIENT
  Age: 44 Year
  Sex: Male
  Weight: 110.32 kg

DRUGS (1)
  1. ANDROGEL [Suspect]
     Indication: BLOOD TESTOSTERONE DECREASED
     Route: 062
     Dates: start: 20110201, end: 20110613

REACTIONS (3)
  - SLEEP APNOEA SYNDROME [None]
  - DYSPNOEA [None]
  - JOINT SWELLING [None]
